FAERS Safety Report 12267996 (Version 2)
Quarter: 2016Q2

REPORT INFORMATION
  Report Type: Spontaneous
  Country: JP (occurrence: JP)
  Receive Date: 20160414
  Receipt Date: 20160421
  Transmission Date: 20160815
  Serious: Yes (Hospitalization, Other)
  Sender: FDA-Public Use
  Company Number: JP-BAYER-2016-066393

PATIENT
  Age: 80 Year
  Sex: Female

DRUGS (9)
  1. BAYASPIRIN [Suspect]
     Active Substance: ASPIRIN
     Dosage: UNK
     Route: 048
  2. CATACLOT [Concomitant]
     Dosage: UNK
  3. AMLODIPINE [Concomitant]
     Active Substance: AMLODIPINE BESYLATE
     Route: 048
  4. LANIRAPID [Concomitant]
     Active Substance: METILDIGOXIN
     Route: 048
  5. LANSOPRAZOLE. [Concomitant]
     Active Substance: LANSOPRAZOLE
     Route: 048
  6. THEO-DUR [Concomitant]
     Active Substance: THEOPHYLLINE ANHYDROUS
     Route: 048
  7. CALCIUM CARBONATE. [Concomitant]
     Active Substance: CALCIUM CARBONATE
     Route: 048
  8. ISOSORBIDE. [Concomitant]
     Active Substance: ISOSORBIDE
     Route: 048
  9. LAXOBERON [Concomitant]
     Active Substance: SODIUM PICOSULFATE
     Route: 048

REACTIONS (3)
  - Pyrexia [Recovered/Resolved]
  - Sepsis [None]
  - Granulocytopenia [Recovering/Resolving]

NARRATIVE: CASE EVENT DATE: 20160406
